FAERS Safety Report 9891926 (Version 3)
Quarter: 2014Q2

REPORT INFORMATION
  Report Type: Report from Study
  Country: DE (occurrence: DE)
  Receive Date: 20140212
  Receipt Date: 20140515
  Transmission Date: 20141212
  Serious: Yes (Hospitalization, Other)
  Sender: FDA-Public Use
  Company Number: DE-ABBVIE-14P-062-1198962-00

PATIENT
  Age: 30 Year
  Sex: Female
  Weight: 95 kg

DRUGS (5)
  1. HUMIRA [Suspect]
     Indication: CROHN^S DISEASE
     Route: 058
     Dates: start: 20130909
  2. HUMIRA [Suspect]
     Route: 058
  3. ANALGESICS [Concomitant]
     Indication: PRODUCT USED FOR UNKNOWN INDICATION
  4. ANTIBIOTICS [Concomitant]
     Indication: PRODUCT USED FOR UNKNOWN INDICATION
  5. IMMUNOSUPRESSIVE DRUG [Concomitant]
     Indication: OSTEOMYELITIS

REACTIONS (3)
  - Osteomyelitis [Recovered/Resolved]
  - Injury [Recovered/Resolved]
  - Crohn^s disease [Recovered/Resolved]
